FAERS Safety Report 5631671-X (Version None)
Quarter: 2008Q1

REPORT INFORMATION
  Report Type: 
  Country: None (occurrence: None)
  Receive Date: 20080206
  Receipt Date: 20080123
  Transmission Date: 20080703
  Serious: Yes (Other)
  Sender: FDA-Public Use
  Company Number: THYM-1000001

PATIENT
  Age: 35 Year
  Sex: Male
  Weight: 68.6 kg

DRUGS (7)
  1. THYMOGLOBULIN [Suspect]
     Indication: TYPE 1 DIABETES MELLITUS
     Dosage: 0.5 MG/KG, ONCE, INTRAVENOUS, 2 MG/KG, QD, INTRAVENOUS
     Route: 042
     Dates: start: 20071213, end: 20071213
  2. THYMOGLOBULIN [Suspect]
     Indication: TYPE 1 DIABETES MELLITUS
     Dosage: 0.5 MG/KG, ONCE, INTRAVENOUS, 2 MG/KG, QD, INTRAVENOUS
     Route: 042
     Dates: start: 20071214, end: 20071216
  3. ACETAMINOPHEN [Concomitant]
  4. CALCIUM CARBONATE [Concomitant]
  5. HYDROMORPHONE HCL [Concomitant]
  6. MEPERIDINE (PETHIDINE) [Concomitant]
  7. VERSED [Concomitant]

REACTIONS (12)
  - CHILLS [None]
  - CYTOKINE RELEASE SYNDROME [None]
  - FATIGUE [None]
  - HEADACHE [None]
  - MALAISE [None]
  - NAUSEA [None]
  - OEDEMA PERIPHERAL [None]
  - PRURITUS [None]
  - PYREXIA [None]
  - RASH MACULAR [None]
  - SERUM SICKNESS [None]
  - VOMITING [None]
